FAERS Safety Report 18034417 (Version 1)
Quarter: 2020Q3

REPORT INFORMATION
  Report Type: Spontaneous
  Country: FR (occurrence: FR)
  Receive Date: 20200716
  Receipt Date: 20200716
  Transmission Date: 20201103
  Serious: Yes (Hospitalization)
  Sender: FDA-Public Use
  Company Number: NVSC2020FR197767

PATIENT
  Age: 56 Year
  Sex: Female

DRUGS (4)
  1. ZOLPIDEM [Suspect]
     Active Substance: ZOLPIDEM TARTRATE
     Indication: SUICIDE ATTEMPT
     Dosage: 105 MG (TOTAL)
     Route: 048
     Dates: start: 20200415, end: 20200415
  2. THIOCOLCHICOSIDE [Suspect]
     Active Substance: THIOCOLCHICOSIDE
     Indication: SUICIDE ATTEMPT
     Dosage: 12 DF, TOTAL
     Route: 048
     Dates: start: 20200415, end: 20200415
  3. ALPRAZOLAM. [Suspect]
     Active Substance: ALPRAZOLAM
     Indication: SUICIDE ATTEMPT
     Dosage: 7.5 MG, TOTAL
     Route: 048
     Dates: start: 20200415, end: 20200415
  4. MELATONINE [Suspect]
     Active Substance: MELATONIN
     Indication: SUICIDE ATTEMPT
     Dosage: 30 DF, TOTAL
     Route: 048
     Dates: start: 20200415, end: 20200415

REACTIONS (3)
  - Diarrhoea [Recovered/Resolved]
  - Intentional overdose [Recovered/Resolved]
  - Depressed level of consciousness [Recovered/Resolved]

NARRATIVE: CASE EVENT DATE: 20200415
